FAERS Safety Report 6079643-8 (Version None)
Quarter: 2009Q1

REPORT INFORMATION
  Report Type: 
  Country: None (occurrence: None)
  Receive Date: 20090211
  Receipt Date: 20090209
  Transmission Date: 20090719
  Serious: Yes (Hospitalization, Disabling)
  Sender: FDA-Public Use
  Company Number: SP02196

PATIENT
  Age: 65 Year
  Sex: Female

DRUGS (2)
  1. VISICOL [Suspect]
     Indication: COLONOSCOPY
     Dosage: 50 GM, ORAL
     Route: 048
     Dates: start: 20081127, end: 20081127
  2. OLMESARTAN MEDOXOMIL [Concomitant]

REACTIONS (6)
  - HYPOPHAGIA [None]
  - KIDNEY ENLARGEMENT [None]
  - NAUSEA [None]
  - NEPHROPATHY [None]
  - RENAL FAILURE [None]
  - VOMITING [None]
